FAERS Safety Report 9602589 (Version 2)
Quarter: 2013Q4

REPORT INFORMATION
  Report Type: Report from Study
  Country: None (occurrence: US)
  Receive Date: 20131007
  Receipt Date: 20131007
  Transmission Date: 20140711
  Serious: Yes (Other)
  Sender: FDA-Public Use
  Company Number: US-DYAX CORP.-2011DX000112

PATIENT
  Age: 34 Year
  Sex: Female

DRUGS (18)
  1. ECALLANTIDE [Suspect]
     Indication: HEREDITARY ANGIOEDEMA
     Route: 058
     Dates: start: 20110726, end: 20110726
  2. ADVAIR HFA [Concomitant]
     Indication: ASTHMA
     Dates: start: 20110428
  3. ADVAIR HFA [Concomitant]
     Dates: start: 20110428
  4. ALVESCO [Concomitant]
     Indication: ASTHMA
     Dates: start: 20110428
  5. AMITRIPTYLINE [Concomitant]
     Indication: MIGRAINE
     Route: 048
  6. CLONAZEPAM [Concomitant]
     Indication: ANXIETY
     Route: 048
     Dates: start: 200605
  7. COMBIVENT [Concomitant]
     Indication: ASTHMA
     Dates: start: 20110428
  8. COUMADIN [Concomitant]
     Indication: PANCREATITIS
     Route: 048
     Dates: start: 200901
  9. CREON [Concomitant]
     Indication: PANCREATITIS
     Route: 048
     Dates: start: 20110624
  10. FLONASE [Concomitant]
     Indication: RHINITIS PERENNIAL
     Route: 045
     Dates: start: 20091211
  11. LORATADINE [Concomitant]
     Indication: RHINITIS
     Route: 048
  12. PROZAC [Concomitant]
     Indication: DEPRESSION
     Route: 048
     Dates: start: 19980213
  13. XOPENEX [Concomitant]
     Indication: ASTHMA
     Dates: start: 20110428
  14. ZOFRAN [Concomitant]
     Indication: PREMEDICATION
     Route: 048
     Dates: start: 200903
  15. ZOFRAN [Concomitant]
     Indication: NAUSEA
     Route: 048
  16. PERCOCET [Concomitant]
     Indication: PAIN
     Route: 048
     Dates: start: 20091211
  17. PERCOCET [Concomitant]
  18. CINRYZE [Concomitant]
     Indication: PRODUCT USED FOR UNKNOWN INDICATION
     Route: 065

REACTIONS (1)
  - Anaphylactic reaction [Recovered/Resolved]
